FAERS Safety Report 9772281 (Version 3)
Quarter: 2014Q2

REPORT INFORMATION
  Report Type: Spontaneous
  Country: US (occurrence: None)
  Receive Date: 20131217
  Receipt Date: 20140522
  Transmission Date: 20141212
  Serious: Yes (Death)
  Sender: FDA-Public Use
  Company Number: US-013950

PATIENT
  Age: 65 Year
  Sex: Male
  Weight: 91.17 kg

DRUGS (15)
  1. FIRMAGON [Suspect]
     Indication: PROSTATE CANCER
     Route: 058
     Dates: start: 20121116, end: 20121116
  2. MEGESTROL [Concomitant]
  3. ZOVIRAX [Concomitant]
  4. OXYCODONE [Concomitant]
  5. WARFARIN [Concomitant]
  6. DEXAMETHASONE [Concomitant]
  7. TRAZODONE [Concomitant]
  8. ONDANSETRON [Concomitant]
  9. HYDROCODONE [Concomitant]
  10. LEVOTHYROXINE [Concomitant]
  11. CALCIUM GLUCONATE [Concomitant]
  12. LYRICA [Concomitant]
  13. DUTASTERIDE [Concomitant]
  14. LOVAZA [Concomitant]
  15. TAMSULOSIN [Concomitant]

REACTIONS (4)
  - Death [None]
  - Gastrointestinal haemorrhage [None]
  - Coagulopathy [None]
  - Metastasis [None]
